FAERS Safety Report 5170371-X (Version None)
Quarter: 2006Q4

REPORT INFORMATION
  Report Type: 
  Country: None (occurrence: None)
  Receive Date: 20061212
  Receipt Date: 20061130
  Transmission Date: 20070319
  Serious: Yes (Other)
  Sender: FDA-Public Use
  Company Number: US-AMGEN-US202120

PATIENT
  Sex: Female

DRUGS (2)
  1. ENBREL [Suspect]
     Indication: RHEUMATOID ARTHRITIS
     Route: 058
     Dates: start: 20050819
  2. METHOTREXATE [Concomitant]
     Route: 048
     Dates: start: 20040826

REACTIONS (2)
  - DIZZINESS [None]
  - STENT PLACEMENT [None]
